FAERS Safety Report 8756142 (Version 1)
Quarter: 2012Q4

REPORT INFORMATION
  Report Type: 
  Country: IT (occurrence: IT)
  Receive Date: 20120828
  Receipt Date: 20120828
  Transmission Date: 20130627
  Serious: Yes (Other)
  Sender: FDA-Public Use
  Company Number: IT-JNJFOC-20120811035

PATIENT
  Age: 64 Year
  Sex: Male

DRUGS (1)
  1. LEVOFLOXACIN [Suspect]
     Indication: PYREXIA
     Route: 042

REACTIONS (7)
  - Hepatic fibrosis [Unknown]
  - Hepatic necrosis [Unknown]
  - Liver function test abnormal [Recovered/Resolved]
  - Gamma-glutamyltransferase increased [Recovered/Resolved]
  - Hepatic steatosis [Unknown]
  - Blood alkaline phosphatase increased [Recovered/Resolved]
  - Leukocytosis [Unknown]
